FAERS Safety Report 9450746 (Version 1)
Quarter: 2013Q3

REPORT INFORMATION
  Report Type: Spontaneous
  Country: US (occurrence: US)
  Receive Date: 20130809
  Receipt Date: 20130809
  Transmission Date: 20140515
  Serious: No
  Sender: FDA-Public Use
  Company Number: US-AMGEN-USASP2013006006

PATIENT
  Sex: Female

DRUGS (3)
  1. NEUPOGEN [Suspect]
     Indication: NEUTROPENIA
     Dosage: 300 MUG, QD
     Dates: start: 201211
  2. ADRIAMYCIN                         /00330901/ [Concomitant]
     Indication: BREAST CANCER
     Dosage: UNK
  3. CYTOXAN [Concomitant]
     Indication: BREAST CANCER
     Dosage: UNK

REACTIONS (6)
  - White blood cell count decreased [Unknown]
  - Back pain [Unknown]
  - Pain in extremity [Unknown]
  - Arthralgia [Unknown]
  - Injection site pain [Unknown]
  - Crying [Unknown]
